FAERS Safety Report 9281599 (Version 1)
Quarter: 2013Q2

REPORT INFORMATION
  Report Type: Spontaneous
  Country: US (occurrence: US)
  Receive Date: 20130509
  Receipt Date: 20130509
  Transmission Date: 20140414
  Serious: Yes (Hospitalization)
  Sender: FDA-Public Use
  Company Number: US-GILEAD-2013-0074921

PATIENT
  Age: 77 Year
  Sex: Female

DRUGS (3)
  1. LETAIRIS [Suspect]
     Indication: PULMONARY HYPERTENSION
     Dosage: 5 MG, QD
     Dates: start: 20130314, end: 20130403
  2. ADCIRCA [Concomitant]
     Dates: start: 20130222, end: 20130403
  3. LASIX                              /00032601/ [Concomitant]

REACTIONS (1)
  - Dyspnoea [Recovered/Resolved]
